FAERS Safety Report 13637800 (Version 2)
Quarter: 2017Q2

REPORT INFORMATION
  Report Type: Spontaneous
  Country: US (occurrence: US)
  Receive Date: 20170609
  Receipt Date: 20170618
  Transmission Date: 20170830
  Serious: No
  Sender: FDA-Public Use
  Company Number: US-SHIRE-US201712809

PATIENT
  Sex: Male
  Weight: 66.67 kg

DRUGS (2)
  1. SYSTANE (HYPROMELLOSE 2910 (4000 MPA.S)) [Concomitant]
     Active Substance: HYPROMELLOSE 2910 (4000 MPA.S)
     Indication: UNEVALUABLE EVENT
     Dosage: UNK, 1X/DAY:QD (NIGHTLY)
     Route: 047
     Dates: start: 2017
  2. XIIDRA [Suspect]
     Active Substance: LIFITEGRAST
     Indication: DRY EYE
     Dosage: UNK, 2X/DAY:BID(EACH EYE)
     Route: 047
     Dates: start: 2017

REACTIONS (3)
  - Vision blurred [Unknown]
  - Therapeutic response shortened [Not Recovered/Not Resolved]
  - Product quality issue [Unknown]

NARRATIVE: CASE EVENT DATE: 2017
